FAERS Safety Report 9753261 (Version 2)
Quarter: 2013Q4

REPORT INFORMATION
  Report Type: Spontaneous
  Country: US (occurrence: US)
  Receive Date: 20131213
  Receipt Date: 20131213
  Transmission Date: 20140711
  Serious: No
  Sender: FDA-Public Use
  Company Number: US-GILEAD-2010-0027335

PATIENT
  Sex: Female

DRUGS (23)
  1. LETAIRIS [Suspect]
     Indication: PULMONARY ARTERIAL HYPERTENSION
     Route: 048
     Dates: start: 20091009
  2. LISINOPRIL [Concomitant]
  3. LASIX [Concomitant]
  4. PROTONIX [Concomitant]
  5. PREDNISONE [Concomitant]
  6. IPRATROPIUM SPRAY [Concomitant]
  7. REVATIO [Concomitant]
  8. BUSPIRONE [Concomitant]
  9. FLONASE [Concomitant]
  10. SKELAXIN [Concomitant]
  11. LORTAB [Concomitant]
  12. LEXAPRO [Concomitant]
  13. TRAZODONE [Concomitant]
  14. COGENTIN [Concomitant]
  15. PHENERGAN [Concomitant]
  16. CELEBREX [Concomitant]
  17. TOPAMAX [Concomitant]
  18. RITALIN [Concomitant]
  19. SEROQUEL [Concomitant]
  20. FROVA [Concomitant]
  21. COLCHICINE [Concomitant]
  22. FE-TINIC [Concomitant]
  23. PROTONIX [Concomitant]

REACTIONS (4)
  - Migraine [Unknown]
  - Dyspnoea [Unknown]
  - Headache [Unknown]
  - Palpitations [Unknown]
